FAERS Safety Report 4654313-9 (Version None)
Quarter: 2005Q2

REPORT INFORMATION
  Report Type: 
  Country: None (occurrence: None)
  Receive Date: 20050404
  Receipt Date: 20041108
  Transmission Date: 20051028
  Serious: No
  Sender: FDA-Public Use
  Company Number: USA041182725

PATIENT
  Sex: Female

DRUGS (3)
  1. CYMBALTA (DULOEXTINE HYDROCHLORIDE) [Suspect]
     Dosage: 60 MG DAY
     Dates: start: 20040801, end: 20041104
  2. CONCERTA [Concomitant]
  3. ORTHO TRI-CYCLEN [Concomitant]

REACTIONS (6)
  - ABDOMINAL PAIN [None]
  - CHILLS [None]
  - DIZZINESS [None]
  - DRUG WITHDRAWAL SYNDROME [None]
  - LOOSE ASSOCIATIONS [None]
  - NAUSEA [None]
